FAERS Safety Report 9172886 (Version 1)
Quarter: 2012Q4

REPORT INFORMATION
  Report Type: 
  Country: US (occurrence: US)
  Receive Date: 20120911
  Receipt Date: 20120911
  Transmission Date: 20130627
  Serious: Yes (Hospitalization)
  Sender: FDA-Public Use
  Company Number: US-ARROW-2012-15761

PATIENT
  Age: 52 Year
  Sex: Female

DRUGS (5)
  1. PREDNISONE (UNKNOWN) [Suspect]
     Indication: B-CELL TYPE ACUTE LEUKAEMIA
     Route: 048
  2. CYCLOPHOSPHAMIDE [Suspect]
     Indication: B-CELL TYPE ACUTE LEUKAEMIA
     Dosage: UNK
     Route: 065
  3. DAUNORUBICIN [Suspect]
     Indication: B-CELL TYPE ACUTE LEUKAEMIA
     Route: 065
  4. VINCRISTINE [Suspect]
     Indication: B-CELL TYPE ACUTE LEUKAEMIA
     Route: 065
  5. SOLU-MEDROL [Suspect]
     Indication: B-CELL TYPE ACUTE LEUKAEMIA
     Route: 042

REACTIONS (4)
  - Posterior reversible encephalopathy syndrome [Recovered/Resolved]
  - Tumour lysis syndrome [Recovered/Resolved]
  - Insomnia [Recovered/Resolved]
  - Neutropenia [Recovered/Resolved]
